FAERS Safety Report 4553140-0 (Version None)
Quarter: 2005Q1

REPORT INFORMATION
  Report Type: 
  Country: None (occurrence: None)
  Receive Date: 20050114
  Receipt Date: 20040615
  Transmission Date: 20050727
  Serious: Yes (Hospitalization)
  Sender: FDA-Public Use
  Company Number: US-GLAXOSMITHKLINE-A0516024A

PATIENT
  Age: 45 Year
  Sex: Female

DRUGS (2)
  1. PAXIL [Suspect]
     Indication: DEPRESSION
     Dosage: 60MG PER DAY
     Route: 048
  2. EFFEXOR [Suspect]

REACTIONS (7)
  - CHILLS [None]
  - CRYING [None]
  - DRUG WITHDRAWAL SYNDROME [None]
  - NAUSEA [None]
  - OVERDOSE [None]
  - SUICIDE ATTEMPT [None]
  - VERTIGO [None]
